FAERS Safety Report 7275989-6 (Version None)
Quarter: 2011Q1

REPORT INFORMATION
  Report Type: 
  Country: None (occurrence: None)
  Receive Date: 20110204
  Receipt Date: 20110126
  Transmission Date: 20110831
  Serious: Yes (Hospitalization)
  Sender: FDA-Public Use
  Company Number: B0653304A

PATIENT
  Sex: Female

DRUGS (10)
  1. LENDORMIN [Concomitant]
     Indication: EPILEPSY
     Dosage: .5MG PER DAY
     Route: 048
     Dates: start: 20060601
  2. PRAVASTATIN [Concomitant]
     Route: 048
     Dates: start: 20100201
  3. LAMICTAL [Suspect]
     Dosage: 25MG PER DAY
     Route: 048
     Dates: start: 20100415, end: 20100429
  4. LAMICTAL [Suspect]
     Dosage: 25MG PER DAY
     Route: 048
     Dates: start: 20100504, end: 20100505
  5. SELENICA-R [Concomitant]
     Indication: EPILEPSY
     Dosage: 200MG PER DAY
     Route: 048
     Dates: start: 20090101
  6. LAMICTAL [Suspect]
     Dosage: 50MG PER DAY
     Route: 048
     Dates: start: 20100430, end: 20100503
  7. FOLIAMIN [Concomitant]
     Dosage: .5MG PER DAY
     Dates: start: 20100401, end: 20100511
  8. ROHYPNOL [Concomitant]
     Indication: EPILEPSY
     Dosage: 1MG PER DAY
     Route: 048
     Dates: start: 20090101
  9. LAMICTAL [Suspect]
     Indication: EPILEPSY
     Dosage: 25MG TWICE PER DAY
     Route: 048
     Dates: start: 20100401, end: 20100414
  10. DIAZEPAM [Concomitant]
     Dosage: 1MG PER DAY

REACTIONS (10)
  - EOSINOPHIL COUNT INCREASED [None]
  - MONOCYTE COUNT INCREASED [None]
  - PYREXIA [None]
  - LYMPHOCYTE COUNT DECREASED [None]
  - ERYTHEMA [None]
  - DRUG RASH WITH EOSINOPHILIA AND SYSTEMIC SYMPTOMS [None]
  - CONDITION AGGRAVATED [None]
  - ERYTHEMA MULTIFORME [None]
  - ALANINE AMINOTRANSFERASE INCREASED [None]
  - DRUG ERUPTION [None]
